FAERS Safety Report 8762372 (Version 1)
Quarter: 2012Q4

REPORT INFORMATION
  Report Type: 
  Country: FR (occurrence: FR)
  Receive Date: 20120830
  Receipt Date: 20120830
  Transmission Date: 20130627
  Serious: Yes (Hospitalization)
  Sender: FDA-Public Use
  Company Number: FR-B.I. PHARMACEUTICALS,INC./RIDGEFIELD-2012-FF-01108FF

PATIENT
  Age: 85 Year
  Sex: Male

DRUGS (6)
  1. PRADAXA [Suspect]
     Indication: ATRIAL FIBRILLATION
     Dosage: 220 mg
     Route: 048
     Dates: start: 20120430
  2. DIAMICRON [Concomitant]
  3. RAMIPRIL [Concomitant]
  4. SIMVASTATINE [Concomitant]
  5. FUROSEMIDE [Concomitant]
  6. ALLOPURINOL [Concomitant]

REACTIONS (12)
  - Melaena [Recovered/Resolved]
  - Anaemia [Recovered/Resolved]
  - Diverticulitis [Unknown]
  - Urinary tract disorder [Unknown]
  - Prostatic disorder [Unknown]
  - Melaena [Recovered/Resolved]
  - Anaemia [Recovered/Resolved]
  - Red blood cell count decreased [Unknown]
  - Duodenitis [Unknown]
  - Anaemia [Not Recovered/Not Resolved]
  - Hypotension [Unknown]
  - Renal failure acute [Unknown]
